FAERS Safety Report 5237622-4 (Version None)
Quarter: 2007Q1

REPORT INFORMATION
  Report Type: 
  Country: None (occurrence: None)
  Receive Date: 20070214
  Receipt Date: 20070205
  Transmission Date: 20070707
  Serious: Yes (Other)
  Sender: FDA-Public Use
  Company Number: PHEH2004US03596

PATIENT
  Age: 47 Year
  Sex: Female

DRUGS (12)
  1. FLUOROURACIL [Concomitant]
     Route: 048
  2. KLONOPIN [Concomitant]
     Indication: DEPRESSION
  3. CHEMOTHERAPEUTICS,OTHER [Concomitant]
     Indication: BREAST CANCER
     Dates: start: 19970101
  4. STEROIDS NOS [Concomitant]
     Route: 042
     Dates: start: 19970101, end: 20020101
  5. ABRAXANE [Concomitant]
  6. CLARITIN [Concomitant]
  7. CIPRO [Concomitant]
  8. ZOMETA [Suspect]
     Dosage: EVERY 3-4 WEEKS
     Route: 042
     Dates: start: 20020101, end: 20031201
  9. CELEXA [Concomitant]
     Indication: DEPRESSION
     Dates: start: 20040901
  10. PRILOSEC [Concomitant]
  11. XELODA [Concomitant]
     Indication: BREAST CANCER
     Dosage: UNK QD
  12. AREDIA [Suspect]
     Indication: BREAST CANCER METASTATIC
     Dosage: UNK, UNK
     Route: 042
     Dates: start: 19970101, end: 20020101

REACTIONS (28)
  - APICECTOMY [None]
  - BLINDNESS TRANSIENT [None]
  - BONE DISORDER [None]
  - BONE GRAFT [None]
  - BONE PAIN [None]
  - DEPRESSION [None]
  - ENDODONTIC PROCEDURE [None]
  - ERYTHEMA [None]
  - EXCESSIVE GRANULATION TISSUE [None]
  - FISTULA [None]
  - IMPAIRED HEALING [None]
  - INCISIONAL DRAINAGE [None]
  - MASS [None]
  - METASTATIC NEOPLASM [None]
  - NERVE BLOCK [None]
  - OSTEITIS [None]
  - OSTEOMYELITIS [None]
  - OSTEONECROSIS [None]
  - OSTEOSYNTHESIS [None]
  - PAIN IN JAW [None]
  - PERICARDIAL DISEASE [None]
  - PLEURAL EFFUSION [None]
  - SENSORY LOSS [None]
  - SEQUESTRECTOMY [None]
  - SOFT TISSUE INFECTION [None]
  - SWELLING FACE [None]
  - TOOTH EXTRACTION [None]
  - TRISMUS [None]
